FAERS Safety Report 5583861-2 (Version None)
Quarter: 2008Q1

REPORT INFORMATION
  Report Type: 
  Country: None (occurrence: None)
  Receive Date: 20080108
  Receipt Date: 20080103
  Transmission Date: 20080703
  Serious: Yes (Other)
  Sender: FDA-Public Use
  Company Number: US-JNJFOC-20070401491

PATIENT
  Sex: Female
  Weight: 104.78 kg

DRUGS (17)
  1. REMICADE [Suspect]
     Route: 042
  2. REMICADE [Suspect]
     Indication: ANKYLOSING SPONDYLITIS
     Route: 042
  3. REMICADE [Suspect]
     Indication: PSORIATIC ARTHROPATHY
     Route: 042
  4. METHOTREXATE [Suspect]
     Indication: ANKYLOSING SPONDYLITIS
  5. SINGULAIR [Concomitant]
     Indication: ASTHMA
  6. ALLEGRA D 24 HOUR [Concomitant]
     Indication: MULTIPLE ALLERGIES
  7. SPORANOX [Concomitant]
  8. INDOCIN [Concomitant]
  9. ESTRATEST [Concomitant]
  10. CELEXA [Concomitant]
  11. SKELEXIN [Concomitant]
  12. BENICAR [Concomitant]
  13. LEVOXYL [Concomitant]
  14. NOGAREL [Concomitant]
  15. ASTELIN [Concomitant]
  16. FURADIL [Concomitant]
  17. QVAR 40 [Concomitant]

REACTIONS (1)
  - HISTOPLASMOSIS [None]
